FAERS Safety Report 13632739 (Version 1)
Quarter: 2017Q2

REPORT INFORMATION
  Report Type: Spontaneous
  Country: US (occurrence: US)
  Receive Date: 20170531
  Receipt Date: 20170531
  Transmission Date: 20170830
  Serious: Yes (Other)
  Sender: FDA-Public Use
  Company Number: US-ASTELLAS-1476718

PATIENT
  Sex: Female

DRUGS (5)
  1. DOXYCYCLINE HYCLATE. [Concomitant]
     Active Substance: DOXYCYCLINE HYCLATE
  2. FLUOXETINE [Concomitant]
     Active Substance: FLUOXETINE HYDROCHLORIDE
  3. ENOXAPARIN [Concomitant]
     Active Substance: ENOXAPARIN
  4. TARCEVA [Suspect]
     Active Substance: ERLOTINIB HYDROCHLORIDE
     Indication: LUNG NEOPLASM MALIGNANT
     Route: 048
     Dates: start: 20130720
  5. TARCEVA [Suspect]
     Active Substance: ERLOTINIB HYDROCHLORIDE
     Route: 048
     Dates: start: 20131102, end: 20150206

REACTIONS (8)
  - Pain [Recovering/Resolving]
  - Alopecia [Recovering/Resolving]
  - Dry eye [Recovering/Resolving]
  - Dry mouth [Recovering/Resolving]
  - Nasal dryness [Recovering/Resolving]
  - Dry throat [Recovering/Resolving]
  - Drug ineffective [Unknown]
  - Dry skin [Recovering/Resolving]
